FAERS Safety Report 18658389 (Version 1)
Quarter: 2020Q4

REPORT INFORMATION
  Report Type: Spontaneous
  Country: US (occurrence: US)
  Receive Date: 20201223
  Receipt Date: 20201223
  Transmission Date: 20210114
  Serious: Yes (Other)
  Sender: FDA-Public Use
  Company Number: US-HQ SPECIALTY-US-2020INT000157

PATIENT
  Sex: Female

DRUGS (4)
  1. TAXOL [Suspect]
     Active Substance: PACLITAXEL
     Dosage: ENDED FOR THE LAST FOUR TREATMENTS
     Route: 065
     Dates: start: 2020, end: 202007
  2. CISPLATIN. [Suspect]
     Active Substance: CISPLATIN
     Indication: PRODUCT USED FOR UNKNOWN INDICATION
     Dosage: TWO TREATMENTS TOGETHER WITH OTHER DRUGS, EVERY 21 DAYS
     Route: 065
     Dates: start: 202003, end: 202007
  3. TAXOL [Suspect]
     Active Substance: PACLITAXEL
     Indication: PRODUCT USED FOR UNKNOWN INDICATION
     Dosage: TWO TREATMENTS TOGETHER WITH OTHER DRUGS, EVERY 21 DAYS
     Route: 065
     Dates: start: 202003, end: 2020
  4. CARBOPLATIN. [Suspect]
     Active Substance: CARBOPLATIN
     Indication: PRODUCT USED FOR UNKNOWN INDICATION
     Dosage: TWO TREATMENTS TOGETHER WITH OTHER DRUGS, EVERY 21 DAYS
     Route: 065
     Dates: start: 202003, end: 202007

REACTIONS (2)
  - Drug ineffective [Unknown]
  - Neoplasm recurrence [Unknown]

NARRATIVE: CASE EVENT DATE: 2020
